FAERS Safety Report 9156792 (Version 1)
Quarter: 2013Q1

REPORT INFORMATION
  Report Type: Spontaneous
  Country: US (occurrence: US)
  Receive Date: 20130312
  Receipt Date: 20130312
  Transmission Date: 20140127
  Serious: Yes (Hospitalization)
  Sender: FDA-Public Use
  Company Number: US-BAYER-2013-027628

PATIENT
  Age: 44 Year
  Sex: Female

DRUGS (11)
  1. YASMIN [Suspect]
     Indication: ENDOMETRIOSIS
  2. YASMIN [Suspect]
     Indication: ADENOMYOSIS
  3. ALLEGRA [Concomitant]
  4. LEXAPRO [Concomitant]
  5. RHINOCORT [Concomitant]
  6. LIPITOR [Concomitant]
  7. FEXOFENADINE HYDROCHLORIDE [Concomitant]
  8. HYDROCHLOROTHIAZID [Concomitant]
     Indication: BLOOD PRESSURE ABNORMAL
  9. MULTIVITAMINS AND IRON [Concomitant]
     Dosage: UNK
     Dates: start: 200510
  10. SUDAFED [Concomitant]
  11. ANAPROX [Concomitant]

REACTIONS (1)
  - Pulmonary embolism [None]
